FAERS Safety Report 16101341 (Version 3)
Quarter: 2019Q2

REPORT INFORMATION
  Report Type: Spontaneous
  Country: CH (occurrence: CH)
  Receive Date: 20190321
  Receipt Date: 20190415
  Transmission Date: 20190711
  Serious: Yes (Hospitalization, Other)
  Sender: FDA-Public Use
  Company Number: CH-MYLANLABS-2019M1026038

PATIENT
  Age: 55 Year
  Sex: Male

DRUGS (8)
  1. GABAPENTIN PFIZER [Concomitant]
     Active Substance: GABAPENTIN
     Dosage: 1 DOSAGE FORM, QD (1-0-0-0)
     Route: 048
  2. COSAAR FORTE [Concomitant]
     Active Substance: LOSARTAN POTASSIUM
     Dosage: 0.5 DOSAGE FORM, QD (0.5-0-0-0)
     Route: 048
  3. COMILORID [Concomitant]
     Active Substance: HYDROCHLOROTHIAZIDE
     Dosage: 1 DOSAGE FORM, QD (1-0-0-0)
     Route: 048
  4. LIPANTHYL [Concomitant]
     Active Substance: FENOFIBRATE
     Dosage: 267 MILLIGRAM, QD (0-1-0-0)
     Route: 048
  5. REMERON [Concomitant]
     Active Substance: MIRTAZAPINE
     Dosage: 1 DOSAGE FORM, QD (0-0-0-1)
     Route: 048
  6. DALMADORM [Suspect]
     Active Substance: FLURAZEPAM HYDROCHLORIDE
     Indication: PRODUCT USED FOR UNKNOWN INDICATION
     Dosage: 30 MILLIGRAM, QD (0-0-0-1)
     Route: 048
     Dates: end: 20190208
  7. VENLAFAXIN PFIZER [Concomitant]
     Active Substance: VENLAFAXINE HYDROCHLORIDE
     Dosage: 1 DOSAGE FORM, QD (0-0-0-1)
     Route: 048
  8. DEXILANT [Concomitant]
     Active Substance: DEXLANSOPRAZOLE
     Dosage: 1 DOSAGE FORM, QD (0-0-0-1)
     Route: 048

REACTIONS (4)
  - Suicide attempt [Recovered/Resolved]
  - Altered state of consciousness [Recovered/Resolved]
  - Syncope [Recovered/Resolved]
  - Drug abuse [Recovered/Resolved]

NARRATIVE: CASE EVENT DATE: 20190208
